FAERS Safety Report 5845721-9 (Version None)
Quarter: 2008Q3

REPORT INFORMATION
  Report Type: 
  Country: None (occurrence: None)
  Receive Date: 20080814
  Receipt Date: 20080807
  Transmission Date: 20090109
  Serious: Yes (Other)
  Sender: FDA-Public Use
  Company Number: PHHY2008BR17385

PATIENT

DRUGS (5)
  1. CLOZAPINE [Suspect]
     Dosage: 50 MG PER DAY (1.5 TABLET/DAY)
     Route: 065
  2. CYMBALTA [Concomitant]
     Indication: DEPRESSION
     Dosage: 60 MG
     Route: 065
  3. RIVOTRIL [Concomitant]
     Indication: PANIC DISORDER
     Dosage: 0.5 MG, BID
     Route: 065
  4. RIVOTRIL [Concomitant]
     Indication: TINNITUS
  5. PSYCHOACTIVE AGENT [Concomitant]
     Route: 065

REACTIONS (3)
  - DEPRESSION [None]
  - DIZZINESS [None]
  - HYPOCHONDRIASIS [None]
